FAERS Safety Report 8990788 (Version 1)
Quarter: 2012Q4

REPORT INFORMATION
  Report Type: Spontaneous
  Country: US (occurrence: None)
  Receive Date: 20121226
  Receipt Date: 20121226
  Transmission Date: 20130627
  Serious: Yes (Other)
  Sender: FDA-Public Use
  Company Number: None

PATIENT
  Age: 41 Year
  Sex: Female
  Weight: 90.72 kg

DRUGS (1)
  1. OXALIPLATIN [Suspect]
     Indication: COLON CANCER
     Dosage: 165 q 2 weeks IV Drip
     Route: 041
     Dates: start: 20121211, end: 20121212

REACTIONS (3)
  - Pharyngeal oedema [None]
  - Flushing [None]
  - Dyspnoea [None]
